FAERS Safety Report 14624375 (Version 1)
Quarter: 2018Q1

REPORT INFORMATION
  Report Type: Spontaneous
  Country: US (occurrence: US)
  Receive Date: 20180309
  Receipt Date: 20180309
  Transmission Date: 20180509
  Serious: Yes (Disabling)
  Sender: FDA-Public Use
  Company Number: None

PATIENT
  Age: 47 Year
  Sex: Female
  Weight: 77.85 kg

DRUGS (5)
  1. LEVOTHYROXINE. [Concomitant]
     Active Substance: LEVOTHYROXINE
  2. OMEGA 3 [Concomitant]
     Active Substance: OMEGA-3 FATTY ACIDS
  3. FLAGYL [Suspect]
     Active Substance: METRONIDAZOLE\METRONIDAZOLE HYDROCHLORIDE
     Indication: BACTERIAL VAGINOSIS
     Dosage: ?          QUANTITY:1 TABLET(S);?
     Route: 048
     Dates: start: 20180213, end: 20180217
  4. VITAMIN D [Concomitant]
     Active Substance: CHOLECALCIFEROL
  5. WOMEN^S MULTI VITAMIN [Concomitant]

REACTIONS (7)
  - Tinnitus [None]
  - Hyperhidrosis [None]
  - Head discomfort [None]
  - Paraesthesia [None]
  - Dyspepsia [None]
  - Abdominal pain [None]
  - Insomnia [None]

NARRATIVE: CASE EVENT DATE: 20180218
